FAERS Safety Report 9790915 (Version 1)
Quarter: 2013Q4

REPORT INFORMATION
  Report Type: Spontaneous
  Country: CA (occurrence: CA)
  Receive Date: 20131231
  Receipt Date: 20131231
  Transmission Date: 20140711
  Serious: Yes (Hospitalization)
  Sender: FDA-Public Use
  Company Number: CA-MYLANLABS-2013S1028674

PATIENT
  Age: 60 Year
  Sex: Male
  Weight: 61.1 kg

DRUGS (14)
  1. RIVAROXABAN [Suspect]
     Dosage: 10MG DAILY
     Route: 065
  2. NEVIRAPINE [Interacting]
     Dosage: 400MG DAILY
     Route: 065
  3. LAMIVUDINE [Concomitant]
     Indication: ANTIRETROVIRAL THERAPY
     Route: 065
  4. ZIDOVUDINE [Concomitant]
     Indication: ANTIRETROVIRAL THERAPY
     Route: 065
  5. AMLODIPINE [Concomitant]
     Dosage: 10MG DAILY
     Route: 065
  6. METOPROLOL [Concomitant]
     Route: 065
  7. LISINOPRIL [Concomitant]
     Dosage: 20MG DAILY
     Route: 065
  8. HYDROCHLOROTHIAZIDE [Concomitant]
     Dosage: 25MG DAILY
     Route: 065
  9. ATORVASTATIN [Concomitant]
     Dosage: 20MG DAILY
     Route: 065
  10. ASPIRIN [Concomitant]
     Dosage: 81MG DAILY
     Route: 065
  11. CELECOXIB [Concomitant]
     Dosage: 200MG DAILY
     Route: 065
  12. OMEPRAZOLE [Concomitant]
     Dosage: 20MG DAILY
     Route: 065
  13. GABAPENTIN [Concomitant]
     Route: 065
  14. LAMOTRIGINE [Concomitant]
     Route: 065

REACTIONS (2)
  - Embolism venous [Recovering/Resolving]
  - Drug interaction [Recovering/Resolving]
